FAERS Safety Report 18568005 (Version 1)
Quarter: 2020Q4

REPORT INFORMATION
  Report Type: Spontaneous
  Country: AU (occurrence: AU)
  Receive Date: 20201202
  Receipt Date: 20201202
  Transmission Date: 20210114
  Serious: Yes (Other)
  Sender: FDA-Public Use
  Company Number: AU-PFIZER INC-2020474878

PATIENT
  Age: 66 Year
  Sex: Male

DRUGS (6)
  1. ENCORAFENIB [Suspect]
     Active Substance: ENCORAFENIB
     Dosage: 300 MG DAILY (MON-FRI SCHEDULE)
     Route: 065
     Dates: start: 2020, end: 2020
  2. BINIMETINIB [Suspect]
     Active Substance: BINIMETINIB
     Dosage: UNK DOSE, 4 DAYS ON AND 3 DAYS OFF
     Route: 065
     Dates: start: 202010
  3. ENCORAFENIB [Suspect]
     Active Substance: ENCORAFENIB
     Dosage: UNK DOSE, 4 DAYS ON AND 3 DAYS OFF
     Route: 065
     Dates: start: 202010
  4. ENCORAFENIB [Suspect]
     Active Substance: ENCORAFENIB
     Indication: METASTATIC MALIGNANT MELANOMA
     Dosage: 450 MG DAILY (FULL DOSE)
     Route: 065
     Dates: start: 202005, end: 2020
  5. BINIMETINIB [Suspect]
     Active Substance: BINIMETINIB
     Indication: METASTATIC MALIGNANT MELANOMA
     Dosage: 90 MG DAILY (FUL DOSE)
     Route: 065
     Dates: start: 202005, end: 2020
  6. BINIMETINIB [Suspect]
     Active Substance: BINIMETINIB
     Dosage: 30 MG, BID (2/DAY), MON-FRI SCHEDULE
     Route: 065
     Dates: start: 2020, end: 2020

REACTIONS (6)
  - Rash [Unknown]
  - Off label use [Unknown]
  - Liver function test abnormal [Unknown]
  - Palmar-plantar erythrodysaesthesia syndrome [Unknown]
  - Lethargy [Unknown]
  - Diarrhoea [Unknown]

NARRATIVE: CASE EVENT DATE: 2020
